FAERS Safety Report 19592947 (Version 1)
Quarter: 2021Q3

REPORT INFORMATION
  Report Type: Spontaneous
  Country: JP (occurrence: JP)
  Receive Date: 20210722
  Receipt Date: 20210722
  Transmission Date: 20211014
  Serious: Yes (Hospitalization, Other)
  Sender: FDA-Public Use
  Company Number: JP-TAKEDA-2021TJP059965

PATIENT
  Age: 40 Year
  Sex: Female

DRUGS (2)
  1. TRINTELLIX [Suspect]
     Active Substance: VORTIOXETINE HYDROBROMIDE
     Indication: PRODUCT USED FOR UNKNOWN INDICATION
     Dosage: 5 MILLIGRAM
     Route: 048
  2. ROZEREM [Suspect]
     Active Substance: RAMELTEON
     Indication: PRODUCT USED FOR UNKNOWN INDICATION
     Dosage: UNK
     Route: 048
     Dates: start: 20210706

REACTIONS (13)
  - Hospitalisation [Unknown]
  - Aggression [Unknown]
  - Dyskinesia [Unknown]
  - Dysphonia [Unknown]
  - Underdose [Unknown]
  - Abnormal sensation in eye [Unknown]
  - Urinary incontinence [Unknown]
  - Hyperhidrosis [Unknown]
  - Vertigo [Unknown]
  - Protrusion tongue [Unknown]
  - Visual impairment [Unknown]
  - Posture abnormal [Unknown]
  - Dyspepsia [Unknown]
